FAERS Safety Report 4448627-5 (Version None)
Quarter: 2004Q3

REPORT INFORMATION
  Report Type: 
  Country: None (occurrence: None)
  Receive Date: 20040909
  Receipt Date: 20040909
  Transmission Date: 20050211
  Serious: Yes (Other)
  Sender: FDA-Public Use
  Company Number: None

PATIENT
  Age: 24 Year
  Sex: Male
  Weight: 83.0083 kg

DRUGS (1)
  1. ULTRAM [Suspect]
     Indication: PAIN IN EXTREMITY
     Dosage: 1-2 Q 8 PRN ORAL
     Route: 048
     Dates: start: 20040830, end: 20041001

REACTIONS (1)
  - NAUSEA [None]
